FAERS Safety Report 14251814 (Version 1)
Quarter: 2017Q4

REPORT INFORMATION
  Report Type: Spontaneous
  Country: GB (occurrence: GB)
  Receive Date: 20171205
  Receipt Date: 20171205
  Transmission Date: 20180321
  Serious: Yes (Other)
  Sender: FDA-Public Use
  Company Number: GB-JNJFOC-20171136687

PATIENT
  Age: 16 Year
  Sex: Male
  Weight: 55.21 kg

DRUGS (2)
  1. CONCERTA [Suspect]
     Active Substance: METHYLPHENIDATE HYDROCHLORIDE
     Indication: ATTENTION DEFICIT/HYPERACTIVITY DISORDER
     Route: 048
  2. CIRCADIN [Concomitant]
     Active Substance: MELATONIN
     Route: 065

REACTIONS (4)
  - Growth retardation [Unknown]
  - Weight gain poor [Unknown]
  - Epiphyses delayed fusion [Unknown]
  - Delayed puberty [Unknown]
